FAERS Safety Report 4336880-8 (Version None)
Quarter: 2004Q2

REPORT INFORMATION
  Report Type: 
  Country: None (occurrence: None)
  Receive Date: 20040408
  Receipt Date: 20040329
  Transmission Date: 20050107
  Serious: Yes (Hospitalization)
  Sender: FDA-Public Use
  Company Number: 163-20785-04030707(0)

PATIENT
  Age: 6 Year
  Sex: Female

DRUGS (3)
  1. THALOMID [Suspect]
     Dosage: 50 MG, DAILY, ORAL
     Route: 048
     Dates: start: 20000401, end: 20001001
  2. THALOMID [Suspect]
     Dosage: 50 MG, DAILY, ORAL
     Route: 048
     Dates: start: 20010110, end: 20010101
  3. STEROIDS (CORTICOSTEROIDS) [Concomitant]

REACTIONS (4)
  - BENIGN INTRACRANIAL HYPERTENSION [None]
  - PAPILLOEDEMA [None]
  - VISUAL ACUITY REDUCED [None]
  - VITH NERVE DISORDER [None]
